FAERS Safety Report 17903718 (Version 1)
Quarter: 2020Q2

REPORT INFORMATION
  Report Type: Spontaneous
  Country: US (occurrence: US)
  Receive Date: 20200617
  Receipt Date: 20200617
  Transmission Date: 20200714
  Serious: No
  Sender: FDA-Public Use
  Company Number: US-ADVANZ PHARMA-202006006335

PATIENT

DRUGS (2)
  1. HYDROXYCHLOROQUINE [Suspect]
     Active Substance: HYDROXYCHLOROQUINE
     Indication: COVID-19 PROPHYLAXIS
     Dosage: 1 DOSAGE FORM, QD (1 PILL EVERY DAY; ABOUT A WEEK AND A HALF NOW)
  2. ZINC. [Concomitant]
     Active Substance: ZINC
     Dosage: UNK UNK, QD (FOR ABOUT A WEEK AND A HALF NOW)

REACTIONS (1)
  - Product use in unapproved indication [Unknown]
